FAERS Safety Report 5054682-4 (Version None)
Quarter: 2006Q3

REPORT INFORMATION
  Report Type: 
  Country: None (occurrence: None)
  Receive Date: 20060719
  Receipt Date: 20060613
  Transmission Date: 20061208
  Serious: Yes (Hospitalization, Disabling, Other)
  Sender: FDA-Public Use
  Company Number: PHBS2006JP08943

PATIENT
  Age: 47 Year
  Sex: Female

DRUGS (5)
  1. AREDIA [Suspect]
     Indication: METASTASES TO BONE
     Dosage: 45 MG/D
     Route: 042
     Dates: start: 20020522, end: 20060607
  2. FARMORUBICIN [Concomitant]
     Indication: METASTASES TO BONE
     Dosage: 75 MG/D
     Route: 042
     Dates: start: 20020523, end: 20020802
  3. FLUOROURACIL [Concomitant]
     Indication: METASTASES TO BONE
     Dosage: 750 DF/D
     Route: 042
     Dates: start: 20020523, end: 20020802
  4. ENDOXAN [Concomitant]
     Indication: METASTASES TO BONE
     Dosage: 750 DF/D
     Route: 042
     Dates: start: 20020523, end: 20020802
  5. TAXOTERE [Concomitant]
     Indication: METASTASES TO BONE
     Dosage: 54 MG/D
     Route: 042
     Dates: start: 20020821, end: 20030616

REACTIONS (4)
  - METASTASES TO PLEURA [None]
  - OSTEOMYELITIS [None]
  - OSTEONECROSIS [None]
  - PERIODONTITIS [None]
